FAERS Safety Report 17617012 (Version 1)
Quarter: 2020Q2

REPORT INFORMATION
  Report Type: Report from Study
  Country: US (occurrence: US)
  Receive Date: 20200402
  Receipt Date: 20200402
  Transmission Date: 20200713
  Serious: No
  Sender: FDA-Public Use
  Company Number: NVSC2020US088727

PATIENT
  Age: 36 Year

DRUGS (2)
  1. MAYZENT [Suspect]
     Active Substance: SIPONIMOD
     Indication: RELAPSING MULTIPLE SCLEROSIS
     Dosage: 2 MG, QD
     Route: 048
     Dates: start: 20200220
  2. MAYZENT [Suspect]
     Active Substance: SIPONIMOD
     Indication: SECONDARY PROGRESSIVE MULTIPLE SCLEROSIS

REACTIONS (1)
  - Product dose omission [Unknown]

NARRATIVE: CASE EVENT DATE: 20200325
